FAERS Safety Report 5703658-X (Version None)
Quarter: 2008Q2

REPORT INFORMATION
  Report Type: 
  Country: None (occurrence: None)
  Receive Date: 20080411
  Receipt Date: 20080408
  Transmission Date: 20081010
  Serious: Yes (Other)
  Sender: FDA-Public Use
  Company Number: DE-GENENTECH-258937

PATIENT
  Sex: Female

DRUGS (5)
  1. RAPTIVA [Suspect]
     Indication: PSORIASIS
     Dosage: 0.7 ML, 1/WEEK
     Route: 058
     Dates: start: 20080218
  2. RAPTIVA [Suspect]
     Dosage: 1 ML, 1/WEEK
     Route: 058
     Dates: start: 20080201
  3. RAPTIVA [Suspect]
     Dosage: 0.5 ML, 1/WEEK
     Route: 058
     Dates: start: 20080310
  4. PENTAERYTHRITOL TETRANITRATE [Concomitant]
     Indication: DRUG USE FOR UNKNOWN INDICATION
     Dosage: 80 MG, BID
     Dates: start: 20070101
  5. OLMESARTAN MEDOXOMIL [Concomitant]
     Indication: DRUG USE FOR UNKNOWN INDICATION
     Dosage: 20 MG, QD
     Dates: start: 20060101

REACTIONS (2)
  - HYPERTENSION [None]
  - INFLUENZA LIKE ILLNESS [None]
